FAERS Safety Report 19593430 (Version 2)
Quarter: 2021Q3

REPORT INFORMATION
  Report Type: Report from Study
  Country: US (occurrence: US)
  Receive Date: 20210722
  Receipt Date: 20210729
  Transmission Date: 20211014
  Serious: Yes (Hospitalization)
  Sender: FDA-Public Use
  Company Number: US-TAIHO ONCOLOGY  INC-EU-2021-02039

PATIENT
  Age: 72 Year
  Sex: Female
  Weight: 53.35 kg

DRUGS (2)
  1. STIVARGA [Concomitant]
     Active Substance: REGORAFENIB
     Dates: start: 2021
  2. LONSURF [Suspect]
     Active Substance: TIPIRACIL HYDROCHLORIDE\TRIFLURIDINE
     Indication: COLON CANCER
     Dosage: CYCLE UNKNOWN
     Route: 048
     Dates: start: 20210204, end: 20210614

REACTIONS (3)
  - Stent placement [Unknown]
  - Disease progression [Unknown]
  - Constipation [Recovering/Resolving]

NARRATIVE: CASE EVENT DATE: 2021
